FAERS Safety Report 5025712-0 (Version None)
Quarter: 2006Q2

REPORT INFORMATION
  Report Type: 
  Country: None (occurrence: None)
  Receive Date: 20060614
  Receipt Date: 20060606
  Transmission Date: 20061013
  Serious: Yes (Other)
  Sender: FDA-Public Use
  Company Number: 2006UW11655

PATIENT
  Age: 70 Year
  Sex: Female
  Weight: 77.1 kg

DRUGS (5)
  1. NEXIUM ORAL [Suspect]
     Indication: DYSPEPSIA
     Route: 048
     Dates: start: 20040101
  2. NEXIUM ORAL [Suspect]
     Indication: GASTROOESOPHAGEAL REFLUX DISEASE
     Route: 048
     Dates: start: 20040101
  3. NEXIUM ORAL [Suspect]
     Route: 048
     Dates: start: 20060101
  4. NEXIUM ORAL [Suspect]
     Route: 048
     Dates: start: 20060101
  5. UNSPECIFIED MEDICATIONS [Concomitant]

REACTIONS (4)
  - ABDOMINAL DISTENSION [None]
  - COLLAPSE OF LUNG [None]
  - DYSPEPSIA [None]
  - HEART VALVE REPLACEMENT [None]
